FAERS Safety Report 19882546 (Version 1)
Quarter: 2021Q3

REPORT INFORMATION
  Report Type: Spontaneous
  Country: CN (occurrence: CN)
  Receive Date: 20210924
  Receipt Date: 20210924
  Transmission Date: 20211014
  Serious: Yes (Other)
  Sender: FDA-Public Use
  Company Number: CN-ASTRAZENECA-2021A733323

PATIENT
  Age: 84 Year
  Sex: Female
  Weight: 45 kg

DRUGS (2)
  1. BUDESONIDE. [Suspect]
     Active Substance: BUDESONIDE
     Indication: COUGH
     Route: 055
     Dates: start: 20210909, end: 20210910
  2. TERBUTALINE SULFATE. [Suspect]
     Active Substance: TERBUTALINE SULFATE
     Indication: COUGH
     Route: 055
     Dates: start: 20210909, end: 20210910

REACTIONS (7)
  - Blood glucose increased [Unknown]
  - Dyspnoea [Recovering/Resolving]
  - Respiratory rate increased [Unknown]
  - Tachycardia [Unknown]
  - Palpitations [Recovering/Resolving]
  - Tremor [Recovering/Resolving]
  - Arrhythmia [Unknown]

NARRATIVE: CASE EVENT DATE: 20210910
